FAERS Safety Report 24698115 (Version 2)
Quarter: 2025Q1

REPORT INFORMATION
  Report Type: Spontaneous
  Country: US (occurrence: US)
  Receive Date: 20241204
  Receipt Date: 20250124
  Transmission Date: 20250409
  Serious: No
  Sender: SANOFI AVENTIS
  Company Number: US-SA-2024SA356455

PATIENT
  Age: 16 Year
  Sex: Male

DRUGS (1)
  1. DUPIXENT [Suspect]
     Active Substance: DUPILUMAB
     Indication: Dermatitis atopic
     Dosage: 300 MG, QOW
     Route: 058
     Dates: start: 202407

REACTIONS (4)
  - Stress [Unknown]
  - Dermatitis atopic [Recovered/Resolved]
  - Erythema [Recovered/Resolved]
  - Skin discomfort [Recovered/Resolved]

NARRATIVE: CASE EVENT DATE: 20240101
